FAERS Safety Report 8823960 (Version 2)
Quarter: 2013Q1

REPORT INFORMATION
  Report Type: Report from Study
  Country: US (occurrence: US)
  Receive Date: 20121003
  Receipt Date: 20130318
  Transmission Date: 20140127
  Serious: Yes (Hospitalization)
  Sender: FDA-Public Use
  Company Number: US-PFIZER INC-2012070220

PATIENT
  Age: 59 Year
  Sex: Male

DRUGS (8)
  1. SPIRONOLACTONE [Suspect]
     Dosage: UNK
  2. FUROSEMIDE [Suspect]
     Dosage: UNK
  3. BLINDED THERAPY [Suspect]
     Indication: TYPE 2 DIABETES MELLITUS
     Dosage: UNK
     Dates: start: 20110325, end: 20110708
  4. BLINDED THERAPY [Suspect]
     Dosage: UNK
     Dates: start: 20110927, end: 20111206
  5. TORASEMIDE [Suspect]
     Dosage: UNK
  6. CARVEDILOL [Suspect]
     Dosage: UNK
  7. ASPIRIN [Concomitant]
     Dosage: UNK
  8. EZETIMIBE [Concomitant]
     Dosage: UNK

REACTIONS (3)
  - Hypotension [Recovered/Resolved]
  - Renal failure acute [Recovered/Resolved]
  - Irritable bowel syndrome [Recovered/Resolved]
